FAERS Safety Report 6304959-7 (Version None)
Quarter: 2009Q3

REPORT INFORMATION
  Report Type: 
  Country: None (occurrence: None)
  Receive Date: 20090806
  Receipt Date: 20090729
  Transmission Date: 20100115
  Serious: No
  Sender: FDA-Public Use
  Company Number: 2009008789

PATIENT
  Sex: Female

DRUGS (3)
  1. FENTORA [Suspect]
     Indication: SPINAL FRACTURE
     Dosage: BU
     Route: 002
  2. MS CONTIN [Concomitant]
  3. DURAGESIC (PARACETAMOL, ORPHENADRINE CITRATE) [Concomitant]

REACTIONS (1)
  - CIRCUMSTANCE OR INFORMATION CAPABLE OF LEADING TO MEDICATION ERROR [None]
